FAERS Safety Report 20226871 (Version 1)
Quarter: 2021Q4

REPORT INFORMATION
  Report Type: Spontaneous
  Country: US (occurrence: US)
  Receive Date: 20211224
  Receipt Date: 20211224
  Transmission Date: 20220303
  Serious: No
  Sender: FDA-Public Use
  Company Number: US-BEH-2021139778

PATIENT
  Age: 62 Year
  Sex: Female
  Weight: 96.75 kg

DRUGS (1)
  1. HIZENTRA [Suspect]
     Active Substance: HUMAN IMMUNOGLOBULIN G
     Indication: Blood immunoglobulin G decreased
     Dosage: 26 GRAM, QOW
     Route: 058

REACTIONS (10)
  - Infusion site erythema [Unknown]
  - Recalled product administered [Unknown]
  - Infusion site pruritus [Unknown]
  - Recalled product administered [Unknown]
  - Infusion site rash [Unknown]
  - Recalled product administered [Unknown]
  - Infusion site reaction [Unknown]
  - Recalled product administered [Unknown]
  - Infusion site swelling [Unknown]
  - Recalled product administered [Unknown]
